FAERS Safety Report 10921943 (Version 2)
Quarter: 2015Q2

REPORT INFORMATION
  Report Type: Spontaneous
  Country: US (occurrence: US)
  Receive Date: 20150317
  Receipt Date: 20150430
  Transmission Date: 20150821
  Serious: Yes (Hospitalization, Other)
  Sender: FDA-Public Use
  Company Number: US-ASTRAZENECA-2015SE21831

PATIENT
  Age: 651 Month

DRUGS (1)
  1. LYNPARZA [Suspect]
     Active Substance: OLAPARIB
     Indication: BRCA1 GENE MUTATION
     Route: 048
     Dates: start: 20150122

REACTIONS (2)
  - Hyperbilirubinaemia [Unknown]
  - Disease progression [Recovering/Resolving]

NARRATIVE: CASE EVENT DATE: 20150122
